FAERS Safety Report 26013835 (Version 2)
Quarter: 2025Q4

REPORT INFORMATION
  Report Type: Report from Study
  Country: RU (occurrence: RU)
  Receive Date: 20251107
  Receipt Date: 20251113
  Transmission Date: 20260117
  Serious: Yes (Other)
  Sender: ROCHE
  Company Number: RU-ROCHE-10000424154

PATIENT

DRUGS (1)
  1. GLOFITAMAB [Suspect]
     Active Substance: GLOFITAMAB
     Indication: Product used for unknown indication
     Route: 065

REACTIONS (7)
  - Anaemia [Unknown]
  - Thrombocytopenia [Unknown]
  - Neutropenia [Unknown]
  - Alanine aminotransferase increased [Unknown]
  - Nausea [Unknown]
  - Diarrhoea [Unknown]
  - Aspartate aminotransferase increased [Unknown]
